FAERS Safety Report 25665362 (Version 2)
Quarter: 2025Q3

REPORT INFORMATION
  Report Type: Spontaneous
  Country: GB (occurrence: GB)
  Receive Date: 20250811
  Receipt Date: 20250828
  Transmission Date: 20251020
  Serious: Yes (Death)
  Sender: TEVA
  Company Number: GB-TEVA-VS-3360680

PATIENT
  Age: 65 Year
  Sex: Male

DRUGS (1)
  1. PACLITAXEL [Suspect]
     Active Substance: PACLITAXEL
     Indication: Acute myocardial infarction
     Route: 065

REACTIONS (2)
  - Coronary artery aneurysm [Fatal]
  - Sudden cardiac death [Fatal]
